FAERS Safety Report 14335495 (Version 1)
Quarter: 2017Q4

REPORT INFORMATION
  Report Type: Spontaneous
  Country: US (occurrence: US)
  Receive Date: 20171229
  Receipt Date: 20171229
  Transmission Date: 20180321
  Serious: No
  Sender: FDA-Public Use
  Company Number: US-SHIRE-US201732770

PATIENT

DRUGS (1)
  1. GATTEX [Suspect]
     Active Substance: TEDUGLUTIDE\WATER
     Indication: SHORT-BOWEL SYNDROME
     Dosage: 0.481 ML, UNK
     Route: 065

REACTIONS (5)
  - Feeling hot [Unknown]
  - Hot flush [Unknown]
  - Flatulence [Unknown]
  - Abdominal pain upper [Unknown]
  - Influenza like illness [Unknown]
